FAERS Safety Report 4330813-6 (Version None)
Quarter: 2004Q1

REPORT INFORMATION
  Report Type: 
  Country: None (occurrence: None)
  Receive Date: 20040331
  Receipt Date: 20040312
  Transmission Date: 20041129
  Serious: Yes (Other)
  Sender: FDA-Public Use
  Company Number: USA030434810

PATIENT
  Age: 51 Year
  Sex: Male
  Weight: 125 kg

DRUGS (4)
  1. HUMALOG [Suspect]
     Indication: DIABETES MELLITUS
     Dosage: 27 U DAY
     Dates: start: 19980101
  2. HUMULIN N [Suspect]
     Indication: DIABETES MELLITUS
     Dosage: 86 U DAY
     Dates: start: 19930101
  3. ACTOS [Concomitant]
  4. LANTUS [Concomitant]

REACTIONS (9)
  - ANAPHYLACTIC SHOCK [None]
  - BLOOD GLUCOSE INCREASED [None]
  - DYSPNOEA [None]
  - FEELING HOT [None]
  - MASTOCYTOSIS [None]
  - NECK PAIN [None]
  - NEOPLASM [None]
  - OROPHARYNGEAL SWELLING [None]
  - THYROID OPERATION [None]
